FAERS Safety Report 15247772 (Version 1)
Quarter: 2018Q4

REPORT INFORMATION
  Report Type: Spontaneous
  Country: US (occurrence: US)
  Receive Date: 20180807
  Receipt Date: 20180807
  Transmission Date: 20190204
  Serious: No
  Sender: FDA-Public Use
  Company Number: US-HIKMA PHARMACEUTICALS USA INC.-US-H14001-18-02286

PATIENT
  Sex: Female

DRUGS (2)
  1. CEVIMELINE. [Suspect]
     Active Substance: CEVIMELINE
     Indication: PRODUCT USED FOR UNKNOWN INDICATION
     Route: 048
     Dates: start: 20180312
  2. CEVIMELINE. [Suspect]
     Active Substance: CEVIMELINE
     Route: 048
     Dates: start: 20171108

REACTIONS (2)
  - Drug ineffective [Unknown]
  - Flushing [Unknown]

NARRATIVE: CASE EVENT DATE: 20180312
